FAERS Safety Report 13347193 (Version 1)
Quarter: 2017Q1

REPORT INFORMATION
  Report Type: Report from Study
  Country: NL (occurrence: NL)
  Receive Date: 20170317
  Receipt Date: 20170317
  Transmission Date: 20170428
  Serious: Yes (Death)
  Sender: FDA-Public Use
  Company Number: PHHY2017NL040782

PATIENT
  Age: 82 Year
  Sex: Male

DRUGS (3)
  1. ZOMETA [Suspect]
     Active Substance: ZOLEDRONIC ACID
     Dosage: 4 MG/ 100 ML (ONCE PER 4 WEEKS)
     Route: 042
     Dates: start: 20110818
  2. ZOMETA [Suspect]
     Active Substance: ZOLEDRONIC ACID
     Indication: PROSTATE CANCER METASTATIC
     Dosage: 4 MG/ 100 ML (ONCE PER 4 WEEKS)
     Route: 042
  3. ZOMETA [Suspect]
     Active Substance: ZOLEDRONIC ACID
     Dosage: 4 MG/ 100 ML (ONCE PER 4 WEEKS)
     Route: 042
     Dates: start: 20130801

REACTIONS (1)
  - Death [Fatal]

NARRATIVE: CASE EVENT DATE: 20170217
